FAERS Safety Report 5363953-3 (Version None)
Quarter: 2007Q2

REPORT INFORMATION
  Report Type: 
  Country: None (occurrence: None)
  Receive Date: 20070620
  Receipt Date: 20070608
  Transmission Date: 20071010
  Serious: Yes (Other)
  Sender: FDA-Public Use
  Company Number: FI-PFIZER INC-2007047102

PATIENT
  Sex: Female

DRUGS (3)
  1. LYRICA [Suspect]
     Indication: ANXIETY
     Dosage: FREQ:EVERY DAY QD
     Route: 048
  2. REMERON [Concomitant]
     Indication: AFFECTIVE DISORDER
     Dosage: DAILY DOSE:50MG
     Route: 048
  3. LORAZEPAM [Concomitant]
     Indication: ANXIETY
     Dosage: FREQ:AS NEEDED

REACTIONS (2)
  - HAEMATOMA [None]
  - INSOMNIA [None]
